FAERS Safety Report 16057789 (Version 1)
Quarter: 2019Q1

REPORT INFORMATION
  Report Type: Spontaneous
  Country: US (occurrence: US)
  Receive Date: 20190311
  Receipt Date: 20190311
  Transmission Date: 20190418
  Serious: No
  Sender: FDA-Public Use
  Company Number: US-MYLANLABS-2019M1017191

PATIENT
  Age: 62 Year
  Sex: Male

DRUGS (1)
  1. HALOPERIDOL. [Suspect]
     Active Substance: HALOPERIDOL
     Indication: SCHIZOPHRENIA
     Dosage: UNK

REACTIONS (7)
  - Initial insomnia [Unknown]
  - Speech disorder [Unknown]
  - Asthenia [Unknown]
  - Blepharospasm [Unknown]
  - Drooling [Unknown]
  - Somnolence [Unknown]
  - Tongue disorder [Unknown]
